FAERS Safety Report 7805313-9 (Version None)
Quarter: 2011Q4

REPORT INFORMATION
  Report Type: 
  Country: None (occurrence: None)
  Receive Date: 20111010
  Receipt Date: 20111006
  Transmission Date: 20120403
  Serious: Yes (Other)
  Sender: FDA-Public Use
  Company Number: JP-ABBOTT-11P-087-0858161-00

PATIENT
  Age: 60 Year
  Sex: Female

DRUGS (8)
  1. OXYGEN [Concomitant]
     Indication: MAINTENANCE OF ANAESTHESIA
  2. ATENOLOL [Concomitant]
     Indication: ELECTROCARDIOGRAM QT PROLONGED
  3. EPIDURAL ANALGESICS [Concomitant]
     Indication: MAINTENANCE OF ANAESTHESIA
  4. PROPOFOL [Concomitant]
     Indication: INDUCTION OF ANAESTHESIA
  5. FENTANYL [Concomitant]
     Indication: INDUCTION OF ANAESTHESIA
  6. ROCURONIUM BROMIDE [Concomitant]
     Indication: INDUCTION OF ANAESTHESIA
  7. REMIFENTANIL [Concomitant]
     Indication: MAINTENANCE OF ANAESTHESIA
  8. SEVOFLURANE [Suspect]
     Indication: MAINTENANCE OF ANAESTHESIA
     Route: 055

REACTIONS (1)
  - TORSADE DE POINTES [None]
